FAERS Safety Report 8433747-0 (Version None)
Quarter: 2012Q2

REPORT INFORMATION
  Report Type: 
  Country: None (occurrence: None)
  Receive Date: 20120613
  Receipt Date: 20120327
  Transmission Date: 20120825
  Serious: Yes (Other)
  Sender: FDA-Public Use
  Company Number: TR-ROXANE LABORATORIES, INC.-2012-EU-01637GD

PATIENT
  Age: 17 Year
  Sex: Female

DRUGS (1)
  1. SERTRALINE HYDROCHLORIDE [Suspect]
     Indication: TENSION HEADACHE
     Dosage: 50 MG

REACTIONS (3)
  - OROMANDIBULAR DYSTONIA [None]
  - DYSTONIA [None]
  - TRISMUS [None]
